FAERS Safety Report 19948674 (Version 1)
Quarter: 2021Q4

REPORT INFORMATION
  Report Type: Spontaneous
  Country: US (occurrence: US)
  Receive Date: 20211008
  Receipt Date: 20211008
  Transmission Date: 20220304
  Serious: Yes (Hospitalization)
  Sender: FDA-Public Use
  Company Number: None

PATIENT
  Sex: Male

DRUGS (1)
  1. DROXIDOPA [Suspect]
     Active Substance: DROXIDOPA
     Indication: Autonomic neuropathy
     Dosage: MAY GO UP TO 6 CAPSULES 3 TIMES DAILY
     Route: 048
     Dates: start: 20210511

REACTIONS (2)
  - Orthostatic hypotension [None]
  - Syncope [None]
